FAERS Safety Report 17468600 (Version 1)
Quarter: 2020Q1

REPORT INFORMATION
  Report Type: Spontaneous
  Country: US (occurrence: US)
  Receive Date: 20200227
  Receipt Date: 20200227
  Transmission Date: 20200409
  Serious: Yes (Other)
  Sender: FDA-Public Use
  Company Number: None

PATIENT
  Age: 37 Year
  Sex: Male
  Weight: 66 kg

DRUGS (3)
  1. PERAMPANEL [Suspect]
     Active Substance: PERAMPANEL
     Indication: EPILEPSY
     Route: 048
  2. DIVALPROEX 750 MG BID [Concomitant]
  3. LEVETIRACETAM 1000 MG BID [Concomitant]

REACTIONS (3)
  - Agitation [None]
  - Abnormal behaviour [None]
  - Fall [None]

NARRATIVE: CASE EVENT DATE: 20190808
